FAERS Safety Report 11898608 (Version 1)
Quarter: 2016Q1

REPORT INFORMATION
  Report Type: Spontaneous
  Country: US (occurrence: None)
  Receive Date: 20160107
  Receipt Date: 20160107
  Transmission Date: 20160526
  Serious: Yes (Other)
  Sender: FDA-Public Use
  Company Number: None

PATIENT
  Age: 83 Year
  Sex: Male
  Weight: 81.65 kg

DRUGS (10)
  1. TERBINAFINE 250MG [Suspect]
     Active Substance: TERBINAFINE
     Indication: ONYCHOMYCOSIS
     Route: 048
     Dates: start: 20151224, end: 20151231
  2. COQ10 [Concomitant]
     Active Substance: UBIDECARENONE
  3. VIT D-3 [Concomitant]
  4. TRAVATAN Z [Concomitant]
     Active Substance: TRAVOPROST
  5. ASPIRIN. [Concomitant]
     Active Substance: ASPIRIN
  6. PROBIOTICS [Concomitant]
     Active Substance: PROBIOTICS NOS
  7. TIMOLOL. [Concomitant]
     Active Substance: TIMOLOL
  8. ZEAXANTHIN PLUS [Concomitant]
  9. LUTEIN [Concomitant]
     Active Substance: LUTEIN
  10. NEVANAC [Concomitant]
     Active Substance: NEPAFENAC

REACTIONS (3)
  - Dysgeusia [None]
  - Dizziness [None]
  - Nausea [None]

NARRATIVE: CASE EVENT DATE: 20160104
